FAERS Safety Report 5524467-0 (Version None)
Quarter: 2007Q4

REPORT INFORMATION
  Report Type: 
  Country: None (occurrence: None)
  Receive Date: 20071122
  Receipt Date: 20071112
  Transmission Date: 20080405
  Serious: Yes (Hospitalization)
  Sender: FDA-Public Use
  Company Number: PHHO2007US05418

PATIENT
  Age: 34 Year
  Sex: Female
  Weight: 71.8 kg

DRUGS (7)
  1. CERTICAN [Suspect]
     Indication: RENAL TRANSPLANT
     Dosage: 1440 MG / DAY
     Route: 048
     Dates: start: 20070222
  2. CERTICAN [Suspect]
     Dosage: 360 MG, TID
     Route: 048
     Dates: end: 20070927
  3. CERTICAN [Suspect]
     Dates: start: 20070930
  4. NEORAL [Concomitant]
     Indication: RENAL TRANSPLANT
     Dosage: 200 MG, BID
     Route: 048
     Dates: start: 20070312
  5. NEORAL [Concomitant]
     Dosage: 125 MG, BID
     Route: 048
     Dates: start: 20070920, end: 20070927
  6. NEORAL [Concomitant]
     Dates: start: 20070928
  7. PREDNISONE TAB [Concomitant]
     Indication: RENAL TRANSPLANT
     Dosage: 10 MG / DAY
     Route: 048
     Dates: start: 20070227

REACTIONS (3)
  - DIARRHOEA [None]
  - NAUSEA [None]
  - VOMITING [None]
